FAERS Safety Report 16943988 (Version 1)
Quarter: 2019Q4

REPORT INFORMATION
  Report Type: Report from Study
  Country: US (occurrence: US)
  Receive Date: 20191022
  Receipt Date: 20191022
  Transmission Date: 20200122
  Serious: Yes (Hospitalization, Other)
  Sender: FDA-Public Use
  Company Number: US-ROCHE-2441228

PATIENT
  Age: 49 Year
  Sex: Female

DRUGS (5)
  1. HUMIRA [Suspect]
     Active Substance: ADALIMUMAB
     Route: 058
  2. HUMIRA [Suspect]
     Active Substance: ADALIMUMAB
     Indication: CROHN^S DISEASE
     Route: 058
  3. LUPRON [Concomitant]
     Active Substance: LEUPROLIDE ACETATE
  4. XELODA [Suspect]
     Active Substance: CAPECITABINE
     Indication: PRODUCT USED FOR UNKNOWN INDICATION
     Route: 048
  5. HUMIRA [Suspect]
     Active Substance: ADALIMUMAB
     Indication: CROHN^S DISEASE
     Route: 058

REACTIONS (11)
  - Malaise [Unknown]
  - Diarrhoea [Unknown]
  - Breast cancer stage IV [Unknown]
  - Fatigue [Not Recovered/Not Resolved]
  - Intestinal obstruction [Unknown]
  - Crohn^s disease [Unknown]
  - Hypophagia [Unknown]
  - Weight decreased [Unknown]
  - Progesterone receptor assay negative [Unknown]
  - Coronary artery occlusion [Unknown]
  - Breast cancer female [Unknown]

NARRATIVE: CASE EVENT DATE: 201711
